FAERS Safety Report 7717302-3 (Version None)
Quarter: 2011Q3

REPORT INFORMATION
  Report Type: 
  Country: None (occurrence: None)
  Receive Date: 20110830
  Receipt Date: 20110818
  Transmission Date: 20111222
  Serious: Yes (Hospitalization)
  Sender: FDA-Public Use
  Company Number: JP-EISAI INC-E7389-01405-SPO-JP

PATIENT
  Age: 65 Year
  Sex: Female
  Weight: 42 kg

DRUGS (10)
  1. LORAZEPAM [Concomitant]
     Route: 048
  2. ACETAMINOPHEN [Concomitant]
     Route: 048
  3. LANSOPRAZOLE [Concomitant]
     Route: 048
  4. GASMOTIN [Concomitant]
     Route: 048
  5. MAGMITT [Concomitant]
     Route: 048
  6. HALAVEN [Suspect]
     Indication: BREAST CANCER
     Route: 041
     Dates: start: 20110729
  7. MUCOSTA [Concomitant]
     Route: 048
  8. TRAMADOL HYDROCHLORIDE [Concomitant]
     Route: 048
  9. HALAVEN [Suspect]
     Indication: METASTASES TO LIVER
  10. HERCEPTIN [Concomitant]
     Indication: BREAST CANCER

REACTIONS (2)
  - HEPATIC FUNCTION ABNORMAL [None]
  - FEBRILE NEUTROPENIA [None]
